FAERS Safety Report 21915187 (Version 2)
Quarter: 2023Q1

REPORT INFORMATION
  Report Type: Report from Study
  Country: US (occurrence: US)
  Receive Date: 20230126
  Receipt Date: 20230203
  Transmission Date: 20230418
  Serious: Yes (Other)
  Sender: FDA-Public Use
  Company Number: US-BEH-2023154497

PATIENT
  Age: 80 Year
  Sex: Male

DRUGS (3)
  1. HIZENTRA [Suspect]
     Active Substance: HUMAN IMMUNOGLOBULIN G
     Indication: Primary immunodeficiency syndrome
     Dosage: 8 GRAM, QW
     Route: 058
     Dates: start: 20221029
  2. HIZENTRA [Suspect]
     Active Substance: HUMAN IMMUNOGLOBULIN G
     Indication: Secondary immunodeficiency
     Dosage: 8 GRAM, QW
     Route: 058
     Dates: start: 20221220
  3. HIZENTRA [Suspect]
     Active Substance: HUMAN IMMUNOGLOBULIN G
     Indication: Hypergammaglobulinaemia

REACTIONS (8)
  - Haemorrhage urinary tract [Recovered/Resolved]
  - Urine output decreased [Recovered/Resolved]
  - Arthralgia [Not Recovered/Not Resolved]
  - Pneumonia pseudomonal [Unknown]
  - No adverse event [Unknown]
  - Product dose omission issue [Unknown]
  - Pancreatic disorder [Unknown]
  - Pancreatic carcinoma [Unknown]

NARRATIVE: CASE EVENT DATE: 20221230
